FAERS Safety Report 24640450 (Version 1)
Quarter: 2024Q4

REPORT INFORMATION
  Report Type: Spontaneous
  Country: IT (occurrence: IT)
  Receive Date: 20241120
  Receipt Date: 20241120
  Transmission Date: 20250115
  Serious: Yes (Other)
  Sender: RANBAXY
  Company Number: IT-SUN PHARMACEUTICAL INDUSTRIES LTD-2024RR-479176

PATIENT
  Age: 69 Year
  Sex: Female

DRUGS (3)
  1. GEMCITABINE [Suspect]
     Active Substance: GEMCITABINE
     Indication: Adenocarcinoma metastatic
     Dosage: UNK
     Route: 065
  2. PACLITAXEL [Suspect]
     Active Substance: PACLITAXEL
     Indication: Adenocarcinoma metastatic
     Dosage: UNK
     Route: 065
  3. IVOSPEMIN [Suspect]
     Active Substance: IVOSPEMIN
     Indication: Adenocarcinoma metastatic
     Dosage: UNK
     Route: 065

REACTIONS (1)
  - Condition aggravated [Unknown]
